FAERS Safety Report 14806715 (Version 1)
Quarter: 2018Q2

REPORT INFORMATION
  Report Type: Spontaneous
  Country: US (occurrence: US)
  Receive Date: 20180402
  Receipt Date: 20180402
  Transmission Date: 20180711
  Serious: Yes (Other)
  Sender: FDA-Public Use
  Company Number: None

PATIENT
  Age: 36 Year
  Sex: Male
  Weight: 103.5 kg

DRUGS (1)
  1. BACLOFEN 10MG [Suspect]
     Active Substance: BACLOFEN
     Indication: MUSCLE SPASMS

REACTIONS (2)
  - Nervousness [None]
  - Enuresis [None]

NARRATIVE: CASE EVENT DATE: 20180402
